FAERS Safety Report 7550510-3 (Version None)
Quarter: 2011Q2

REPORT INFORMATION
  Report Type: 
  Country: None (occurrence: None)
  Receive Date: 20110615
  Receipt Date: 20110606
  Transmission Date: 20111010
  Serious: Yes (Hospitalization)
  Sender: FDA-Public Use
  Company Number: US-ELI_LILLY_AND_COMPANY-US201106002205

PATIENT
  Age: 54 Year
  Sex: Male

DRUGS (11)
  1. LIPITOR [Concomitant]
  2. TRILEPTAL [Concomitant]
  3. ZOFRAN [Concomitant]
  4. SYNTHROID [Concomitant]
  5. CLARITIN [Concomitant]
  6. PHENERGAN HCL [Concomitant]
  7. METFORMIN HCL [Concomitant]
  8. MIRAPEX [Concomitant]
  9. BACLOFEN [Concomitant]
  10. PREVACID [Concomitant]
  11. CYMBALTA [Suspect]
     Indication: PAIN
     Dosage: 30 MG, TID

REACTIONS (5)
  - MEMORY IMPAIRMENT [None]
  - IMPAIRED GASTRIC EMPTYING [None]
  - MEDICATION ERROR [None]
  - POST PROCEDURAL COMPLICATION [None]
  - MALAISE [None]
